FAERS Safety Report 6523692-X (Version None)
Quarter: 2009Q4

REPORT INFORMATION
  Report Type: 
  Country: None (occurrence: None)
  Receive Date: 20091231
  Receipt Date: 20091221
  Transmission Date: 20100525
  Serious: Yes (Other)
  Sender: FDA-Public Use
  Company Number: PHHY2009SE57087

PATIENT
  Sex: Male

DRUGS (1)
  1. SANDOSTATIN LAR [Suspect]
     Indication: GASTROINTESTINAL CARCINOMA
     Dosage: 10 MG, UNK
     Route: 030
     Dates: start: 20091019

REACTIONS (1)
  - PSORIASIS [None]
